FAERS Safety Report 8280923-6 (Version None)
Quarter: 2012Q2

REPORT INFORMATION
  Report Type: 
  Country: None (occurrence: None)
  Receive Date: 20120412
  Receipt Date: 20120402
  Transmission Date: 20120825
  Serious: Yes (Hospitalization)
  Sender: FDA-Public Use
  Company Number: IN-BAXTER-2012BAX002046

PATIENT
  Age: 43 Year
  Sex: Male

DRUGS (2)
  1. DIANEAL PD-2 W/ DEXTROSE 2.5% [Suspect]
     Indication: PERITONEAL DIALYSIS
     Route: 033
     Dates: start: 20120301
  2. DIANEAL PD-2 PERITONEAL DIALISIS SOLUTION ULTRABAG WITH 4.25% DEXTROSE [Suspect]
     Indication: PERITONEAL DIALYSIS
     Route: 033
     Dates: start: 20120301

REACTIONS (2)
  - INFECTIOUS PERITONITIS [None]
  - PERITONEAL DIALYSIS COMPLICATION [None]
